FAERS Safety Report 18413003 (Version 1)
Quarter: 2020Q4

REPORT INFORMATION
  Report Type: Report from Study
  Country: DE (occurrence: DE)
  Receive Date: 20201022
  Receipt Date: 20201022
  Transmission Date: 20210114
  Serious: Yes (Hospitalization, Other)
  Sender: FDA-Public Use
  Company Number: DE-SHILPA MEDICARE LIMITED-SML-DE-2020-00495

PATIENT
  Age: 58 Year
  Sex: Male
  Weight: 124.7 kg

DRUGS (2)
  1. DOCETAXEL, UNKNOWN [Suspect]
     Active Substance: DOCETAXEL
     Indication: LUNG ADENOCARCINOMA
     Dosage: DAILY DOSE: 75 MG/M2 BODY SURFACE AREA FORMULATION OF DOCETAXEL: LIQUID
     Route: 065
     Dates: start: 20190816
  2. VARGATEF [Suspect]
     Active Substance: NINTEDANIB
     Indication: LUNG ADENOCARCINOMA
     Route: 065
     Dates: start: 20190817

REACTIONS (9)
  - Diarrhoea [Recovered/Resolved]
  - Fatigue [Unknown]
  - Urinary tract pain [Not Recovered/Not Resolved]
  - White blood cell count decreased [Recovered/Resolved]
  - Dysphagia [Not Recovered/Not Resolved]
  - Alopecia [Not Recovered/Not Resolved]
  - Nausea [Recovered/Resolved]
  - Stomatitis [Recovered/Resolved]
  - Bronchitis [Recovered/Resolved]

NARRATIVE: CASE EVENT DATE: 20190819
